FAERS Safety Report 7604527-0 (Version None)
Quarter: 2011Q3

REPORT INFORMATION
  Report Type: 
  Country: None (occurrence: None)
  Receive Date: 20110712
  Receipt Date: 20110705
  Transmission Date: 20111222
  Serious: Yes (Hospitalization)
  Sender: FDA-Public Use
  Company Number: KR-JNJFOC-20101106316

PATIENT
  Sex: Female
  Weight: 43.2 kg

DRUGS (3)
  1. PALIPERIDONE [Suspect]
     Indication: SCHIZOPHRENIA
     Route: 030
     Dates: start: 20101111, end: 20101111
  2. GEWORIN [Suspect]
     Indication: PRODUCT USED FOR UNKNOWN INDICATION
     Dates: start: 20101113, end: 20101113
  3. ZIPRASIDONE HYDROCHLORIDE [Concomitant]
     Indication: SCHIZOPHRENIA
     Route: 048
     Dates: start: 20100908

REACTIONS (3)
  - SCHIZOPHRENIA [None]
  - LIVER FUNCTION TEST ABNORMAL [None]
  - SUICIDE ATTEMPT [None]
